FAERS Safety Report 5588160-0 (Version None)
Quarter: 2008Q1

REPORT INFORMATION
  Report Type: 
  Country: None (occurrence: None)
  Receive Date: 20080109
  Receipt Date: 20080109
  Transmission Date: 20080703
  Serious: Yes (Hospitalization)
  Sender: FDA-Public Use
  Company Number: None

PATIENT
  Age: 81 Year
  Sex: Male

DRUGS (2)
  1. WARFARIN SODIUM [Suspect]
     Indication: ATRIAL FIBRILLATION
     Dosage: 10/7.5MG EVERY DAY PO
     Route: 048
     Dates: start: 20041215
  2. WARFARIN SODIUM [Suspect]
     Indication: MITRAL VALVE INCOMPETENCE
     Dosage: 10/7.5MG EVERY DAY PO
     Route: 048
     Dates: start: 20041215

REACTIONS (10)
  - ALCOHOL USE [None]
  - COLONIC POLYP [None]
  - DIVERTICULITIS [None]
  - DYSPNOEA [None]
  - GASTRITIS EROSIVE [None]
  - GASTROINTESTINAL DISORDER [None]
  - INTERNATIONAL NORMALISED RATIO INCREASED [None]
  - MELAENA [None]
  - ORTHOSTATIC HYPOTENSION [None]
  - UPPER GASTROINTESTINAL HAEMORRHAGE [None]
